FAERS Safety Report 17388449 (Version 1)
Quarter: 2020Q1

REPORT INFORMATION
  Report Type: Spontaneous
  Country: US (occurrence: US)
  Receive Date: 20200123
  Receipt Date: 20200123
  Transmission Date: 20200409
  Serious: Yes (Hospitalization)
  Sender: FDA-Public Use
  Company Number: None

PATIENT
  Sex: Female

DRUGS (7)
  1. PANTOPRAZOLE [Concomitant]
     Active Substance: PANTOPRAZOLE
  2. FLOXETINE [Concomitant]
     Active Substance: FLUOXETINE HYDROCHLORIDE
  3. PROCHLORPER [Concomitant]
  4. LEVOTHYROXIN [Concomitant]
     Active Substance: LEVOTHYROXINE
  5. TEMOZOLOMIDE 25MG [Suspect]
     Active Substance: TEMOZOLOMIDE
     Indication: BREAST CANCER FEMALE
     Dosage: ?          OTHER FREQUENCY:QD FOR 5 DAYS ;?
     Route: 048
     Dates: start: 20191031
  6. CLONAZAPAM [Concomitant]
     Active Substance: CLONAZEPAM
  7. APP/CODEINO [Concomitant]

REACTIONS (1)
  - Surgery [None]
